FAERS Safety Report 7339375-2 (Version None)
Quarter: 2011Q1

REPORT INFORMATION
  Report Type: 
  Country: None (occurrence: None)
  Receive Date: 20110308
  Receipt Date: 20110301
  Transmission Date: 20110831
  Serious: Yes (Hospitalization, Other)
  Sender: FDA-Public Use
  Company Number: US-US-EMD SERONO, INC.-7038054

PATIENT
  Sex: Female

DRUGS (5)
  1. REBIF [Suspect]
     Indication: MULTIPLE SCLEROSIS
     Route: 058
     Dates: start: 20101102, end: 20110223
  2. MIRAPEX [Concomitant]
  3. DARVOCET [Suspect]
     Indication: BACK PAIN
  4. STOOL SOFTENER [Concomitant]
  5. DARVOCET [Suspect]
     Indication: MIGRAINE

REACTIONS (4)
  - BLOOD PRESSURE ABNORMAL [None]
  - HEART VALVE INCOMPETENCE [None]
  - BRADYCARDIA [None]
  - TACHYCARDIA [None]
